FAERS Safety Report 22399655 (Version 1)
Quarter: 2023Q2

REPORT INFORMATION
  Report Type: Report from Study
  Country: US (occurrence: US)
  Receive Date: 20230602
  Receipt Date: 20230602
  Transmission Date: 20230722
  Serious: Yes (Other)
  Sender: FDA-Public Use
  Company Number: US-SHIRE-US202032448

PATIENT
  Sex: Female

DRUGS (1)
  1. HUMAN IMMUNOGLOBULIN G [Suspect]
     Active Substance: HUMAN IMMUNOGLOBULIN G
     Indication: Immunodeficiency common variable
     Dosage: UNK
     Route: 065
     Dates: end: 2020

REACTIONS (5)
  - Loss of consciousness [Unknown]
  - Breast cancer female [Unknown]
  - Myocardial infarction [Unknown]
  - Illness [Unknown]
  - Immunoglobulins decreased [Unknown]
